FAERS Safety Report 12975285 (Version 1)
Quarter: 2016Q4

REPORT INFORMATION
  Report Type: Spontaneous
  Country: US (occurrence: US)
  Receive Date: 20161124
  Receipt Date: 20161124
  Transmission Date: 20170207
  Serious: Yes (Other)
  Sender: FDA-Public Use
  Company Number: None

PATIENT
  Sex: Female
  Weight: 68.85 kg

DRUGS (2)
  1. JUNEL [Suspect]
     Active Substance: ETHINYL ESTRADIOL\NORETHINDRONE ACETATE
     Indication: CONTRACEPTION
     Dosage: 20 IG MICROGRAM (S)
     Route: 048
     Dates: start: 20161113, end: 20161118
  2. JUNEL [Suspect]
     Active Substance: ETHINYL ESTRADIOL\NORETHINDRONE ACETATE
     Indication: MENOPAUSAL SYMPTOMS
     Dosage: 20 IG MICROGRAM (S)
     Route: 048
     Dates: start: 20161113, end: 20161118

REACTIONS (3)
  - Axillary pain [None]
  - Breast tenderness [None]
  - Product substitution issue [None]

NARRATIVE: CASE EVENT DATE: 20161113
